FAERS Safety Report 13469344 (Version 2)
Quarter: 2018Q3

REPORT INFORMATION
  Report Type: Spontaneous
  Country: JP (occurrence: JP)
  Receive Date: 20170421
  Receipt Date: 20180713
  Transmission Date: 20181010
  Serious: Yes (Life-Threatening, Other)
  Sender: FDA-Public Use
  Company Number: JP-BAUSCH-BL-2017-010569

PATIENT
  Age: 28 Year
  Sex: Female
  Weight: 67 kg

DRUGS (8)
  1. ROPIVACAINE [Suspect]
     Active Substance: ROPIVACAINE
     Indication: ANAESTHESIA
     Route: 008
  2. BUPIVACAINE. [Suspect]
     Active Substance: BUPIVACAINE
     Indication: ANAESTHESIA
     Dosage: 25?GAUGE SPINAL NEEDLE
     Route: 065
  3. GLYCERYL TRINITRATE [Suspect]
     Active Substance: NITROGLYCERIN
     Indication: UTERINE ATONY
     Dosage: ANOTHER INJECTION OF THE SAME DOSE 90 SECONDS LATER ; IN TOTAL
     Route: 065
  4. MAGNESIUM SULFATE. [Concomitant]
     Active Substance: MAGNESIUM SULFATE
     Indication: PRODUCT USED FOR UNKNOWN INDICATION
     Dosage: LOADING DOSE
  5. METHYLDOPA. [Concomitant]
     Active Substance: METHYLDOPA
     Indication: PRODUCT USED FOR UNKNOWN INDICATION
  6. FENTANYL. [Suspect]
     Active Substance: FENTANYL
     Indication: ANAESTHESIA
     Dosage: 25?GAUGE SPINAL NEEDLE
     Route: 065
  7. MAGNESIUM SULFATE. [Concomitant]
     Active Substance: MAGNESIUM SULFATE
     Dosage: ONE GRAM PER HOUR
     Route: 042
  8. PHENYLEPHRINE [Concomitant]
     Active Substance: PHENYLEPHRINE\PHENYLEPHRINE HYDROCHLORIDE
     Indication: HYPOTENSION
     Route: 042

REACTIONS (3)
  - Cardiac arrest [Recovered/Resolved]
  - Syncope [Recovered/Resolved]
  - Maternal exposure during pregnancy [Recovered/Resolved]
